FAERS Safety Report 18068932 (Version 1)
Quarter: 2020Q3

REPORT INFORMATION
  Report Type: Spontaneous
  Country: FR (occurrence: FR)
  Receive Date: 20200724
  Receipt Date: 20200724
  Transmission Date: 20201103
  Serious: Yes (Other)
  Sender: FDA-Public Use
  Company Number: FR-CANTON LABORATORIES, LLC-2087741

PATIENT
  Age: 9 Year
  Sex: Female

DRUGS (6)
  1. SYMBICORT [Suspect]
     Active Substance: BUDESONIDE\FORMOTEROL FUMARATE DIHYDRATE
     Dates: start: 201909
  2. MONTELUKAST [Suspect]
     Active Substance: MONTELUKAST SODIUM
     Route: 048
     Dates: start: 201911, end: 202005
  3. MULTICROM [Suspect]
     Active Substance: CROMOLYN SODIUM
     Dates: start: 2019
  4. NAPROSYN [Suspect]
     Active Substance: NAPROXEN
     Indication: PAIN
     Route: 048
     Dates: start: 20200214
  5. NASONEX [Suspect]
     Active Substance: MOMETASONE FUROATE
     Dates: start: 2019, end: 2019
  6. AERIUS (DESLORATADINE) [Suspect]
     Active Substance: DESLORATADINE
     Route: 048
     Dates: start: 201909

REACTIONS (5)
  - Somatic symptom disorder [Recovered/Resolved]
  - Off label use [Unknown]
  - Anxiety [Not Recovered/Not Resolved]
  - Nightmare [Not Recovered/Not Resolved]
  - Hallucination, auditory [Not Recovered/Not Resolved]

NARRATIVE: CASE EVENT DATE: 202003
